FAERS Safety Report 11317245 (Version 9)
Quarter: 2015Q4

REPORT INFORMATION
  Report Type: Spontaneous
  Country: FR (occurrence: FR)
  Receive Date: 20150728
  Receipt Date: 20151014
  Transmission Date: 20160304
  Serious: Yes (Hospitalization, Other)
  Sender: FDA-Public Use
  Company Number: FR-PFIZER INC-2015245994

PATIENT
  Age: 71 Year
  Sex: Female

DRUGS (16)
  1. NABUCOX [Suspect]
     Active Substance: NABUMETONE
     Indication: NECK PAIN
     Dosage: UNK
     Route: 048
     Dates: start: 20150625, end: 20150626
  2. ORAMORPH [Suspect]
     Active Substance: MORPHINE SULFATE
     Dosage: 1 DF, 1X/DAY
     Route: 048
     Dates: start: 20150630, end: 20150701
  3. TAHOR [Concomitant]
     Active Substance: ATORVASTATIN CALCIUM
     Dosage: 10 MG, 1X/DAY
     Route: 048
  4. LANSOPRAZOLE. [Suspect]
     Active Substance: LANSOPRAZOLE
     Indication: NECK PAIN
     Dosage: UNK
     Route: 048
     Dates: start: 20150625, end: 20150626
  5. NIFLUGEL [Suspect]
     Active Substance: NIFLUMIC ACID
     Indication: NECK PAIN
     Dosage: UNK
     Route: 062
     Dates: start: 20150625, end: 20150626
  6. GINKGO EXTRACT\HEPTAMINOL\TROXERUTIN [Concomitant]
     Active Substance: GINKGO\HEPTAMINOL\TROXERUTIN
     Dosage: UNK
     Route: 048
  7. INEXIUM [Suspect]
     Active Substance: ESOMEPRAZOLE
     Dosage: 40 MG, 1X/DAY
     Route: 048
     Dates: start: 20150627, end: 20150629
  8. LOXEN LP [Concomitant]
     Active Substance: NICARDIPINE
     Dosage: 50 MG, 2X/DAY
     Route: 048
     Dates: start: 20150629
  9. LYRICA [Suspect]
     Active Substance: PREGABALIN
     Dosage: 50 MG, 3X/DAY
     Route: 048
     Dates: start: 20150630
  10. PARACETAMOL [Suspect]
     Active Substance: ACETAMINOPHEN
     Dosage: UNK
     Route: 048
     Dates: start: 20150627, end: 20150701
  11. LYRICA [Suspect]
     Active Substance: PREGABALIN
     Dosage: 25 MG, DAILY
     Route: 048
  12. TOPALGIC LP [Suspect]
     Active Substance: TRAMADOL
     Dosage: 100 MG, 2X/DAY
     Route: 048
     Dates: start: 20150627, end: 20150629
  13. THIOCOLCHICOSIDE SANDOZ [Suspect]
     Active Substance: THIOCOLCHICOSIDE
     Dosage: 8 MG, 1X/DAY
     Route: 048
     Dates: start: 20150630, end: 20150701
  14. CODOLIPRANE [Suspect]
     Active Substance: ACETAMINOPHEN\CODEINE PHOSPHATE
     Indication: NECK PAIN
     Dosage: UNK
     Route: 048
     Dates: start: 20150625, end: 20150626
  15. APRANAX [Suspect]
     Active Substance: NAPROXEN
     Dosage: 550 MG, 2X/DAY
     Route: 048
     Dates: start: 20150627, end: 20150629
  16. TENSTATEN [Concomitant]
     Active Substance: CICLETANINE HYDROCHLORIDE
     Dosage: 100 MG, 1X/DAY
     Route: 048

REACTIONS (4)
  - Inappropriate antidiuretic hormone secretion [Unknown]
  - Hyponatraemia [Recovered/Resolved]
  - Vomiting [Recovered/Resolved]
  - Escherichia urinary tract infection [Unknown]

NARRATIVE: CASE EVENT DATE: 20150701
